FAERS Safety Report 20059080 (Version 1)
Quarter: 2021Q4

REPORT INFORMATION
  Report Type: Spontaneous
  Country: US (occurrence: None)
  Receive Date: 20211111
  Receipt Date: 20211111
  Transmission Date: 20220304
  Serious: Yes (Hospitalization)
  Sender: FDA-Public Use
  Company Number: None

PATIENT
  Age: 15 Year
  Sex: Female

DRUGS (3)
  1. VOTRIENT [Suspect]
     Active Substance: PAZOPANIB HYDROCHLORIDE
     Indication: Malignant connective tissue neoplasm
     Dosage: TAKE 3 TABLETS BY MOUTH ONCE DAILY
     Route: 048
     Dates: start: 20211002
  2. VOTRIENT [Suspect]
     Active Substance: PAZOPANIB HYDROCHLORIDE
     Indication: Soft tissue sarcoma
  3. UDENYCA [Concomitant]
     Active Substance: PEGFILGRASTIM-CBQV

REACTIONS (10)
  - Weight decreased [None]
  - Disease complication [None]
  - Therapy interrupted [None]
  - Blood potassium decreased [None]
  - Alopecia [None]
  - Headache [None]
  - Nausea [None]
  - Splinter haemorrhages [None]
  - Infection [None]
  - Illness [None]

NARRATIVE: CASE EVENT DATE: 20211103
